FAERS Safety Report 9699326 (Version 3)
Quarter: 2015Q3

REPORT INFORMATION
  Report Type: Spontaneous
  Country: US (occurrence: US)
  Receive Date: 20131120
  Receipt Date: 20150803
  Transmission Date: 20151125
  Serious: No
  Sender: FDA-Public Use
  Company Number: US-GILEAD-2008-0015584

PATIENT
  Age: 48 Year
  Sex: Female
  Weight: 147.42 kg

DRUGS (13)
  1. LEVOTHYROXINE. [Concomitant]
     Active Substance: LEVOTHYROXINE
     Route: 048
  2. PROAIR HFA [Concomitant]
     Active Substance: ALBUTEROL SULFATE
     Route: 055
  3. OXYCODONE [Concomitant]
     Active Substance: OXYCODONE
     Route: 048
  4. FLUTICASONE [Concomitant]
     Active Substance: FLUTICASONE\FLUTICASONE PROPIONATE
     Route: 045
  5. LETAIRIS [Suspect]
     Active Substance: AMBRISENTAN
     Indication: PULMONARY ARTERIAL HYPERTENSION
     Route: 048
     Dates: start: 20080225
  6. POTASSIUM [Concomitant]
     Active Substance: POTASSIUM
     Route: 048
  7. DAILY MULTIVITAMIN [Concomitant]
     Active Substance: VITAMINS
     Route: 048
  8. BUMETANIDE. [Concomitant]
     Active Substance: BUMETANIDE
     Route: 048
  9. QVAR [Concomitant]
     Active Substance: BECLOMETHASONE DIPROPIONATE
     Route: 055
  10. WARFARIN [Concomitant]
     Active Substance: WARFARIN
     Route: 048
  11. CALCIUM [Concomitant]
     Active Substance: CALCIUM
     Route: 048
  12. TYLENOL ARTHRITIS PAIN [Concomitant]
     Active Substance: ACETAMINOPHEN
     Route: 048
  13. LISINOPRIL. [Concomitant]
     Active Substance: LISINOPRIL
     Route: 048

REACTIONS (4)
  - Fatigue [Unknown]
  - Somnolence [Unknown]
  - Blood pressure decreased [Unknown]
  - Fluid retention [Unknown]
